FAERS Safety Report 6500050-5 (Version None)
Quarter: 2009Q4

REPORT INFORMATION
  Report Type: 
  Country: None (occurrence: None)
  Receive Date: 20091216
  Receipt Date: 20091207
  Transmission Date: 20100525
  Serious: Yes (Other)
  Sender: FDA-Public Use
  Company Number: DE-JNJFOC-20090802582

PATIENT
  Sex: Female
  Weight: 82 kg

DRUGS (6)
  1. RISPERDAL CONSTA [Suspect]
     Indication: SCHIZOPHRENIA
     Route: 030
  2. RISPERDAL CONSTA [Suspect]
     Route: 030
  3. ANTIHYPERTENSIVE [Concomitant]
     Route: 065
  4. ASPIRIN [Concomitant]
     Route: 065
  5. INSULIN [Concomitant]
     Route: 065
  6. METFORMIN [Concomitant]
     Route: 065

REACTIONS (8)
  - ARTHRALGIA [None]
  - CARDIAC DISORDER [None]
  - DECREASED IMMUNE RESPONSIVENESS [None]
  - GASTROINTESTINAL DISORDER [None]
  - GENERALISED OEDEMA [None]
  - POLYNEUROPATHY [None]
  - PRURITUS [None]
  - PSYCHOTIC DISORDER [None]
